FAERS Safety Report 11857638 (Version 1)
Quarter: 2015Q4

REPORT INFORMATION
  Report Type: Spontaneous
  Country: US (occurrence: None)
  Receive Date: 20151221
  Receipt Date: 20151221
  Transmission Date: 20160305
  Serious: Yes (Other)
  Sender: FDA-Public Use
  Company Number: None

PATIENT
  Age: 55 Year
  Sex: Female

DRUGS (9)
  1. TURMERIC [Concomitant]
     Active Substance: TURMERIC
  2. PROLIA [Suspect]
     Active Substance: DENOSUMAB
     Indication: OSTEOPOROSIS
     Dosage: INNTO THE MUSCLE
  3. VITAMIN C [Concomitant]
     Active Substance: ASCORBIC ACID
  4. NORTROPLILENE [Concomitant]
  5. OMEGA THREE [Concomitant]
  6. MAXI HAIR [Concomitant]
  7. VITAMIN D [Concomitant]
     Active Substance: CHOLECALCIFEROL
  8. VITAMIN C [Concomitant]
     Active Substance: ASCORBIC ACID
  9. BONE UP [Concomitant]

REACTIONS (3)
  - Depression [None]
  - Psoriasis [None]
  - Alopecia [None]
